FAERS Safety Report 18411801 (Version 2)
Quarter: 2024Q1

REPORT INFORMATION
  Report Type: Spontaneous
  Country: PT (occurrence: PT)
  Receive Date: 20201021
  Receipt Date: 20240110
  Transmission Date: 20240409
  Serious: Yes (Hospitalization, Other)
  Sender: FDA-Public Use
  Company Number: PT-UCBSA-2020038157

PATIENT
  Age: 45 Year
  Sex: Female

DRUGS (23)
  1. LEVETIRACETAM [Suspect]
     Active Substance: LEVETIRACETAM
     Indication: Seizure
     Dosage: 1000 MILLIGRAM PER DAY
     Route: 065
     Dates: start: 2007
  2. LEVETIRACETAM [Suspect]
     Active Substance: LEVETIRACETAM
     Dosage: 4000 MILLIGRAM PER DAY
     Route: 065
     Dates: start: 2009
  3. LEVETIRACETAM [Suspect]
     Active Substance: LEVETIRACETAM
     Dosage: 4000 MILLIGRAM PER DAY
     Route: 065
     Dates: start: 2010
  4. LEVETIRACETAM [Suspect]
     Active Substance: LEVETIRACETAM
     Dosage: 4000 MILLIGRAM PER DAY
     Route: 065
     Dates: start: 2011
  5. LEVETIRACETAM [Suspect]
     Active Substance: LEVETIRACETAM
     Dosage: 4000 MILLIGRAM PER DAY
     Route: 065
     Dates: start: 2012
  6. LEVETIRACETAM [Suspect]
     Active Substance: LEVETIRACETAM
     Dosage: 4000 MILLIGRAM PER DAY
     Route: 065
     Dates: start: 2015
  7. CLOBAZAM [Concomitant]
     Active Substance: CLOBAZAM
     Indication: Seizure
     Dosage: 20 MILLIGRAM PER DAY
     Route: 065
     Dates: start: 2007
  8. CLOBAZAM [Concomitant]
     Active Substance: CLOBAZAM
     Dosage: 20 MILLIGRAM PER DAY
     Route: 065
     Dates: start: 2009
  9. CLOBAZAM [Concomitant]
     Active Substance: CLOBAZAM
     Dosage: 40 MILLIGRAM PER DAY
     Route: 065
     Dates: start: 2010
  10. CLOBAZAM [Concomitant]
     Active Substance: CLOBAZAM
     Dosage: 40 MILLIGRAM PER DAY
     Route: 065
     Dates: start: 2011
  11. CLOBAZAM [Concomitant]
     Active Substance: CLOBAZAM
     Dosage: 40 MILLIGRAM PER DAY
     Route: 065
     Dates: start: 2012
  12. CLOBAZAM [Concomitant]
     Active Substance: CLOBAZAM
     Dosage: 40 MILLIGRAM PER DAY
     Route: 065
     Dates: start: 2015
  13. CLONAZEPAM [Concomitant]
     Active Substance: CLONAZEPAM
     Indication: Seizure
     Dosage: 4 MILLIGRAM PER DAY
     Route: 065
     Dates: start: 2012
  14. CLONAZEPAM [Concomitant]
     Active Substance: CLONAZEPAM
     Dosage: 4 MILLIGRAM PER DAY
     Route: 065
     Dates: start: 2015
  15. CARBAMAZEPINE [Concomitant]
     Active Substance: CARBAMAZEPINE
     Indication: Seizure
     Dosage: 1200 MILLIGRAM PER DAY
     Route: 065
     Dates: start: 2007
  16. CARBAMAZEPINE [Concomitant]
     Active Substance: CARBAMAZEPINE
     Dosage: 1200 MILLIGRAM PER DAY
     Route: 065
     Dates: start: 2009
  17. CARBAMAZEPINE [Concomitant]
     Active Substance: CARBAMAZEPINE
     Dosage: 1200 MILLIGRAM PER DAY
     Route: 065
     Dates: start: 2010
  18. CARBAMAZEPINE [Concomitant]
     Active Substance: CARBAMAZEPINE
     Dosage: 1800 MILLIGRAM PER DAY
     Route: 065
     Dates: start: 2011
  19. CARBAMAZEPINE [Concomitant]
     Active Substance: CARBAMAZEPINE
     Dosage: 1800 MILLIGRAM PER DAY
     Route: 065
     Dates: start: 2012
  20. CARBAMAZEPINE [Concomitant]
     Active Substance: CARBAMAZEPINE
     Dosage: 1200 MILLIGRAM PER DAY
     Route: 065
     Dates: start: 2015
  21. RISPERIDONE [Concomitant]
     Active Substance: RISPERIDONE
     Indication: Product used for unknown indication
     Dosage: 50 MILLIGRAM PER MILLILITRE
     Route: 065
  22. RISPERIDONE [Concomitant]
     Active Substance: RISPERIDONE
     Dosage: 6 MILLIGRAM PER DAY
     Route: 065
  23. ZOTEPINE [Concomitant]
     Active Substance: ZOTEPINE
     Indication: Product used for unknown indication
     Dosage: UNKNOWN DOSE
     Route: 065

REACTIONS (4)
  - Schizophrenia [Recovered/Resolved]
  - Epilepsy [Unknown]
  - Drug ineffective [Unknown]
  - Prescribed overdose [Unknown]

NARRATIVE: CASE EVENT DATE: 20090101
